FAERS Safety Report 18552377 (Version 3)
Quarter: 2023Q4

REPORT INFORMATION
  Report Type: Report from Study
  Country: US (occurrence: US)
  Receive Date: 20201127
  Receipt Date: 20231107
  Transmission Date: 20240109
  Serious: Yes (Death, Other)
  Sender: FDA-Public Use
  Company Number: US-ACADIA PHARMACEUTICALS INC.-ACA-2020-PIM-003597

PATIENT
  Age: 80 Year
  Sex: Male
  Weight: 75 kg

DRUGS (2)
  1. NUPLAZID [Suspect]
     Active Substance: PIMAVANSERIN TARTRATE
     Indication: Parkinson^s disease
     Dosage: 34 MILLIGRAM, QD
     Route: 048
     Dates: start: 20200624
  2. NUPLAZID [Suspect]
     Active Substance: PIMAVANSERIN TARTRATE
     Indication: Parkinson^s disease psychosis

REACTIONS (7)
  - Death [Fatal]
  - Derealisation [Unknown]
  - Memory impairment [Unknown]
  - Confusional state [Unknown]
  - Somnolence [Unknown]
  - Hallucination, visual [Unknown]
  - Confusional state [Unknown]

NARRATIVE: CASE EVENT DATE: 20231023
